FAERS Safety Report 4949237-3 (Version None)
Quarter: 2006Q1

REPORT INFORMATION
  Report Type: 
  Country: None (occurrence: None)
  Receive Date: 20060321
  Receipt Date: 20060309
  Transmission Date: 20060701
  Serious: Yes (Other)
  Sender: FDA-Public Use
  Company Number: CH-SANOFI-SYNTHELABO-A01200601910

PATIENT
  Age: 54 Year
  Sex: Female

DRUGS (10)
  1. STILNOX [Suspect]
     Indication: INTENTIONAL OVERDOSE
     Route: 048
     Dates: start: 20051110, end: 20051110
  2. STILNOX [Suspect]
     Route: 048
  3. TRAMAL RETARD [Suspect]
     Indication: BACK PAIN
     Route: 048
     Dates: start: 20051110, end: 20051110
  4. TRAMAL RETARD [Suspect]
     Route: 048
  5. TRAMAL RETARD [Suspect]
     Indication: INTENTIONAL OVERDOSE
     Route: 048
     Dates: start: 20051110, end: 20051110
  6. TRAMAL RETARD [Suspect]
     Route: 048
  7. FLUCTINE [Suspect]
     Indication: DEPRESSION
     Route: 048
     Dates: start: 20000101
  8. TRANXILIUM [Concomitant]
     Indication: DRUG USE FOR UNKNOWN INDICATION
     Route: 048
  9. SIRDALUD [Concomitant]
     Indication: DRUG USE FOR UNKNOWN INDICATION
     Route: 048
  10. DAFALGAN [Concomitant]
     Indication: DRUG USE FOR UNKNOWN INDICATION
     Dosage: UNK
     Route: 065

REACTIONS (10)
  - CONFUSIONAL STATE [None]
  - CONVULSION [None]
  - DRUG ABUSER [None]
  - ENCEPHALOPATHY [None]
  - INTENTIONAL OVERDOSE [None]
  - MYOCLONUS [None]
  - NAUSEA [None]
  - PYREXIA [None]
  - SEROTONIN SYNDROME [None]
  - VOMITING [None]
